FAERS Safety Report 14351722 (Version 1)
Quarter: 2018Q1

REPORT INFORMATION
  Report Type: Other
  Country: IN (occurrence: IN)
  Receive Date: 20180104
  Receipt Date: 20180104
  Transmission Date: 20180509
  Serious: Yes (Life-Threatening)
  Sender: FDA-Public Use
  Company Number: IN-STASON PHARMACEUTICALS, INC.-2038393

PATIENT
  Age: 8 Year
  Sex: Male

DRUGS (1)
  1. MERCAPTOPURINE. [Suspect]
     Active Substance: MERCAPTOPURINE

REACTIONS (5)
  - Cellulitis gangrenous [Unknown]
  - Sepsis [Unknown]
  - Renal tubular necrosis [Unknown]
  - Pulmonary oedema [Unknown]
  - Bone marrow failure [Unknown]
